FAERS Safety Report 8779266 (Version 1)
Quarter: 2012Q4

REPORT INFORMATION
  Report Type: Report from Study
  Country: CA (occurrence: CA)
  Receive Date: 20120912
  Receipt Date: 20120912
  Transmission Date: 20130627
  Serious: Yes (Other)
  Sender: FDA-Public Use
  Company Number: CA-ROCHE-1123798

PATIENT
  Sex: Female
  Weight: 87.62 kg

DRUGS (13)
  1. ROACTEMRA [Suspect]
     Indication: RHEUMATOID ARTHRITIS
     Route: 042
     Dates: start: 20111114
  2. ROACTEMRA [Suspect]
     Route: 042
     Dates: start: 20120322, end: 20120906
  3. PLAQUENIL [Concomitant]
  4. METHOTREXATE [Concomitant]
  5. EZETROL [Concomitant]
  6. LYRICA [Concomitant]
  7. ATACAND [Concomitant]
  8. CES [Concomitant]
  9. RABEPRAZOLE [Concomitant]
  10. FOLIC ACID [Concomitant]
  11. PREDNISONE [Concomitant]
  12. FOSAVANCE [Concomitant]
  13. SERTRALINE [Concomitant]

REACTIONS (2)
  - Drug ineffective [Unknown]
  - Rheumatoid arthritis [Not Recovered/Not Resolved]
